FAERS Safety Report 9434621 (Version 1)
Quarter: 2013Q3

REPORT INFORMATION
  Report Type: Spontaneous
  Country: US (occurrence: US)
  Receive Date: 20130801
  Receipt Date: 20130801
  Transmission Date: 20140515
  Serious: No
  Sender: FDA-Public Use
  Company Number: US-PFIZER INC-2013224408

PATIENT
  Sex: Female

DRUGS (1)
  1. CHANTIX [Suspect]
     Dosage: UNK
     Dates: start: 2013

REACTIONS (3)
  - Emotional disorder [Unknown]
  - Irritability [Unknown]
  - Headache [Unknown]
